FAERS Safety Report 20649262 (Version 1)
Quarter: 2022Q1

REPORT INFORMATION
  Report Type: Spontaneous
  Country: KR (occurrence: KR)
  Receive Date: 20220329
  Receipt Date: 20220329
  Transmission Date: 20220423
  Serious: No
  Sender: FDA-Public Use
  Company Number: KR-PFIZER INC-202200469745

PATIENT

DRUGS (1)
  1. PAXLOVID [Suspect]
     Active Substance: NIRMATRELVIR\RITONAVIR
     Indication: COVID-19 treatment
     Dosage: 1 TABLET OF NIRMATRELVIR AND 2 TABLETS OF RITONAVIR
     Route: 048

REACTIONS (1)
  - Incorrect dose administered [Unknown]
